FAERS Safety Report 18966263 (Version 1)
Quarter: 2021Q1

REPORT INFORMATION
  Report Type: Spontaneous
  Country: DE (occurrence: DE)
  Receive Date: 20210303
  Receipt Date: 20210303
  Transmission Date: 20210420
  Serious: Yes (Other)
  Sender: FDA-Public Use
  Company Number: DE-ANIPHARMA-2021-DE-000029

PATIENT
  Age: 47 Year
  Sex: Female

DRUGS (5)
  1. ANASTROZOLE. [Suspect]
     Active Substance: ANASTROZOLE
     Indication: BREAST CANCER
     Dosage: 1 MG DAILY
     Route: 048
  2. OLAPARIB. [Suspect]
     Active Substance: OLAPARIB
     Dosage: 300 MG BID / 150 MG BID / DOSE TEXT: ATTEMPTED TO INCREASE DOSE BUT IT WAS NOT TOLERATED
     Route: 048
     Dates: start: 202009
  3. TAMOXIFEN [Suspect]
     Active Substance: TAMOXIFEN
     Dosage: 20 MG UNK
     Route: 048
     Dates: start: 201202, end: 201205
  4. LETROZOLE. [Concomitant]
     Active Substance: LETROZOLE
     Dosage: 2.5 MG UNK
     Route: 065
     Dates: start: 201205, end: 201703
  5. PALBOCICLIB [Concomitant]
     Active Substance: PALBOCICLIB
     Dosage: 125 MG DAILY 21 DAYS ON 7 DAYS OFF
     Route: 065

REACTIONS (3)
  - Metastases to liver [Unknown]
  - Haemoglobin decreased [Unknown]
  - Fatigue [Unknown]

NARRATIVE: CASE EVENT DATE: 202009
